FAERS Safety Report 23245020 (Version 3)
Quarter: 2024Q1

REPORT INFORMATION
  Report Type: Report from Study
  Country: FR (occurrence: FR)
  Receive Date: 20231130
  Receipt Date: 20240108
  Transmission Date: 20240409
  Serious: Yes (Other)
  Sender: FDA-Public Use
  Company Number: FR-JNJFOC-20230514129

PATIENT
  Age: 76 Year
  Sex: Male

DRUGS (11)
  1. VENETOCLAX [Suspect]
     Active Substance: VENETOCLAX
     Indication: Product used for unknown indication
     Route: 048
     Dates: start: 20230111, end: 20230322
  2. BARACLUDE [Concomitant]
     Active Substance: ENTECAVIR
     Indication: Product used for unknown indication
  3. ATOVAQUONE [Concomitant]
     Active Substance: ATOVAQUONE
     Indication: Product used for unknown indication
  4. TECLISTAMAB [Suspect]
     Active Substance: TECLISTAMAB
     Indication: Plasma cell myeloma
     Route: 058
     Dates: end: 20230802
  5. TECLISTAMAB [Suspect]
     Active Substance: TECLISTAMAB
     Indication: Plasma cell myeloma
     Route: 058
     Dates: start: 20230322, end: 20230802
  6. BACTRIM [Concomitant]
     Active Substance: SULFAMETHOXAZOLE\TRIMETHOPRIM
     Indication: Product used for unknown indication
     Dates: end: 20230413
  7. TENOFOVIR [Concomitant]
     Active Substance: TENOFOVIR
     Indication: Product used for unknown indication
  8. CARFILZOMIB [Concomitant]
     Active Substance: CARFILZOMIB
     Indication: Product used for unknown indication
     Dosage: 2 LINE OF THERAPY (THERAPY WAS NOT TRANSPLANT RELATED)
     Route: 065
     Dates: start: 20230825
  9. CYCLOPHOSPHAMIDE [Concomitant]
     Active Substance: CYCLOPHOSPHAMIDE
     Indication: Product used for unknown indication
     Dosage: 2 LINE OF THERAPY (THERAPY WAS NOT TRANSPLANT RELATED)
     Route: 065
     Dates: start: 20230825
  10. DEXAMETHASONE [Concomitant]
     Active Substance: DEXAMETHASONE
     Indication: Product used for unknown indication
     Dosage: 2 LINE OF THERAPY (THERAPY WAS NOT TRANSPLANT RELATED)
     Route: 065
     Dates: start: 20230825
  11. DEXAMETHASONE [Concomitant]
     Active Substance: DEXAMETHASONE
     Indication: Product used for unknown indication
     Dosage: 2 LINE OF THERAPY (THERAPY WAS NOT TRANSPLANT RELATED)
     Route: 065
     Dates: start: 20230825

REACTIONS (9)
  - Neutropenia [Recovered/Resolved]
  - Pain [Recovering/Resolving]
  - Gingivitis [Recovered/Resolved]
  - Blood creatinine increased [Recovered/Resolved]
  - Hepatic cytolysis [Recovering/Resolving]
  - Gingivitis [Recovered/Resolved]
  - Plasma cell myeloma [Recovered/Resolved]
  - Discomfort [Recovering/Resolving]
  - Anaemia [Recovered/Resolved]

NARRATIVE: CASE EVENT DATE: 20230322
